FAERS Safety Report 7833690-1 (Version None)
Quarter: 2011Q4

REPORT INFORMATION
  Report Type: 
  Country: None (occurrence: None)
  Receive Date: 20111024
  Receipt Date: 20111013
  Transmission Date: 20120403
  Serious: Yes (Disabling)
  Sender: FDA-Public Use
  Company Number: US-JNJFOC-20110909960

PATIENT
  Sex: Female
  Weight: 121.56 kg

DRUGS (13)
  1. METHOTREXATE [Concomitant]
     Indication: ARTHRITIS
     Route: 048
     Dates: start: 20110401
  2. FOLIC ACID [Concomitant]
     Indication: MEDICAL DIET
     Route: 048
     Dates: start: 20110401
  3. VITAMIN D [Concomitant]
     Dosage: DOSE 50000
     Route: 048
     Dates: start: 20110401
  4. PREDNISONE [Concomitant]
     Route: 048
     Dates: end: 20110901
  5. HYDROXYCHLOROQUINE SULFATE [Concomitant]
     Indication: ARTHRITIS
     Route: 048
     Dates: start: 20110401
  6. REMICADE [Suspect]
     Indication: ARTHRITIS
     Route: 042
     Dates: start: 20110901
  7. VITAMIN D [Concomitant]
     Route: 048
     Dates: start: 20110401
  8. ANTI-ANXIETY MEDICATION (NOS) [Concomitant]
     Indication: ANXIETY
     Route: 048
     Dates: start: 20030101
  9. NAPROXEN [Concomitant]
     Route: 048
     Dates: start: 20110401
  10. ZOLPIDEM [Concomitant]
     Route: 048
     Dates: end: 20110901
  11. KLONOPIN [Concomitant]
     Indication: SLEEP DISORDER
     Route: 048
     Dates: start: 20110401, end: 20110901
  12. CALCIUM WITH VITAMIN D [Concomitant]
     Route: 048
     Dates: start: 20110401
  13. ASPIRIN [Concomitant]
     Route: 048
     Dates: start: 19880101

REACTIONS (12)
  - DRUG INEFFECTIVE [None]
  - MUSCULAR WEAKNESS [None]
  - ARTHRALGIA [None]
  - IMPAIRED WORK ABILITY [None]
  - INFUSION RELATED REACTION [None]
  - HAIR GROWTH ABNORMAL [None]
  - ABASIA [None]
  - PAIN [None]
  - FEELING COLD [None]
  - BLOOD PRESSURE INCREASED [None]
  - FEELING HOT [None]
  - MIGRAINE [None]
